FAERS Safety Report 24402023 (Version 1)
Quarter: 2024Q4

REPORT INFORMATION
  Report Type: Spontaneous
  Country: US (occurrence: US)
  Receive Date: 20241007
  Receipt Date: 20241007
  Transmission Date: 20250115
  Serious: No
  Sender: RANBAXY
  Company Number: US-SUN PHARMACEUTICAL INDUSTRIES LTD-2023R1-421317

PATIENT
  Age: 72 Year
  Sex: Female

DRUGS (2)
  1. CEQUA [Suspect]
     Active Substance: CYCLOSPORINE
     Indication: Product used for unknown indication
     Dosage: UNK (TUESDAY)
     Route: 047
     Dates: start: 202311
  2. CEQUA [Suspect]
     Active Substance: CYCLOSPORINE
     Dosage: UNK (WEDNESDAY MORNING AND NIGHT)
     Route: 047
     Dates: start: 202311

REACTIONS (3)
  - Eye irritation [Recovering/Resolving]
  - Eye allergy [Unknown]
  - Eye pain [Recovering/Resolving]

NARRATIVE: CASE EVENT DATE: 20231101
